FAERS Safety Report 17045108 (Version 1)
Quarter: 2019Q4

REPORT INFORMATION
  Report Type: Spontaneous
  Country: US (occurrence: US)
  Receive Date: 20191118
  Receipt Date: 20191118
  Transmission Date: 20200122
  Serious: No
  Sender: FDA-Public Use
  Company Number: US-SA-2019SA317633

PATIENT
  Sex: Female
  Weight: 126.98 kg

DRUGS (15)
  1. TRIAMCINOLONE ACETONIDE. [Concomitant]
     Active Substance: TRIAMCINOLONE ACETONIDE
  2. PROAIR HFA [Concomitant]
     Active Substance: ALBUTEROL SULFATE
  3. NEUPRO [Concomitant]
     Active Substance: ROTIGOTINE
     Dosage: 2 MG, QD
  4. AMLODIPINE BESILATE [Concomitant]
     Active Substance: AMLODIPINE BESYLATE
  5. SPIRIVA RESPIMAT [Concomitant]
     Active Substance: TIOTROPIUM BROMIDE
  6. TRAZODONE HYDROCHLORIDE. [Concomitant]
     Active Substance: TRAZODONE HYDROCHLORIDE
  7. ADVAIR HFA [Concomitant]
     Active Substance: FLUTICASONE PROPIONATE\SALMETEROL XINAFOATE
  8. OMEPRAZOLE. [Concomitant]
     Active Substance: OMEPRAZOLE
  9. LOSARTAN POTASSIUM. [Concomitant]
     Active Substance: LOSARTAN POTASSIUM
  10. BACLOFEN. [Concomitant]
     Active Substance: BACLOFEN
  11. SERTRALINE HCL [Concomitant]
     Active Substance: SERTRALINE HYDROCHLORIDE
  12. DUPIXENT [Suspect]
     Active Substance: DUPILUMAB
     Indication: DERMATITIS ATOPIC
     Dosage: 300 MG, QOW
     Route: 058
     Dates: start: 201811
  13. SINGULAIR [Concomitant]
     Active Substance: MONTELUKAST SODIUM
  14. IBUPROFEN. [Concomitant]
     Active Substance: IBUPROFEN
  15. DESONIDE. [Concomitant]
     Active Substance: DESONIDE

REACTIONS (3)
  - Skin exfoliation [Unknown]
  - Dry skin [Unknown]
  - Skin fissures [Unknown]
